FAERS Safety Report 25374162 (Version 3)
Quarter: 2025Q3

REPORT INFORMATION
  Report Type: Spontaneous
  Country: EU (occurrence: EU)
  Receive Date: 20250529
  Receipt Date: 20250809
  Transmission Date: 20251021
  Serious: Yes (Life-Threatening, Hospitalization, Other)
  Sender: ALEXION PHARMACEUTICALS
  Company Number: EU-AstraZeneca-CH-00877799AM

PATIENT
  Age: 68 Year
  Sex: Male
  Weight: 70 kg

DRUGS (2)
  1. ROFLUMILAST [Suspect]
     Active Substance: ROFLUMILAST
     Indication: Psoriasis
     Dosage: 250 MILLIGRAM, QD
     Dates: start: 20250515, end: 20250515
  2. CYCLOSPORINE [Concomitant]
     Active Substance: CYCLOSPORINE
     Route: 065

REACTIONS (4)
  - Glucose-6-phosphate dehydrogenase deficiency [Recovered/Resolved]
  - Haemolysis [Unknown]
  - Off label use [Unknown]
  - Jaundice [Unknown]

NARRATIVE: CASE EVENT DATE: 20250515
